FAERS Safety Report 19871870 (Version 2)
Quarter: 2022Q2

REPORT INFORMATION
  Report Type: Report from Study
  Country: US (occurrence: US)
  Receive Date: 20210923
  Receipt Date: 20220513
  Transmission Date: 20220721
  Serious: Yes (Hospitalization, Other)
  Sender: FDA-Public Use
  Company Number: US-TAKEDA-US201833943

PATIENT
  Age: 60 Year
  Sex: Female
  Weight: 51.7 kg

DRUGS (25)
  1. TEDUGLUTIDE [Suspect]
     Active Substance: TEDUGLUTIDE
     Indication: Short-bowel syndrome
     Dosage: 0.05 MILLIGRAM/KILOGRAM, QD
     Route: 042
     Dates: start: 201605, end: 201605
  2. TEDUGLUTIDE [Suspect]
     Active Substance: TEDUGLUTIDE
     Indication: Short-bowel syndrome
     Dosage: 0.05 MILLIGRAM/KILOGRAM, QD
     Route: 042
     Dates: start: 201605, end: 201605
  3. TEDUGLUTIDE [Suspect]
     Active Substance: TEDUGLUTIDE
     Indication: Short-bowel syndrome
     Dosage: 0.05 MILLIGRAM/KILOGRAM, QD
     Route: 042
     Dates: start: 201605, end: 201605
  4. TEDUGLUTIDE [Suspect]
     Active Substance: TEDUGLUTIDE
     Indication: Short-bowel syndrome
     Dosage: 0.05 MILLIGRAM/KILOGRAM, QD
     Route: 042
     Dates: start: 201605, end: 201605
  5. TEDUGLUTIDE [Suspect]
     Active Substance: TEDUGLUTIDE
     Dosage: 0.05 MILLIGRAM/KILOGRAM, QD
     Route: 042
     Dates: start: 20160602, end: 20160607
  6. TEDUGLUTIDE [Suspect]
     Active Substance: TEDUGLUTIDE
     Dosage: 0.05 MILLIGRAM/KILOGRAM, QD
     Route: 042
     Dates: start: 20160602, end: 20160607
  7. TEDUGLUTIDE [Suspect]
     Active Substance: TEDUGLUTIDE
     Dosage: 0.05 MILLIGRAM/KILOGRAM, QD
     Route: 042
     Dates: start: 20160602, end: 20160607
  8. TEDUGLUTIDE [Suspect]
     Active Substance: TEDUGLUTIDE
     Dosage: 0.05 MILLIGRAM/KILOGRAM, QD
     Route: 042
     Dates: start: 20160602, end: 20160607
  9. TEDUGLUTIDE [Suspect]
     Active Substance: TEDUGLUTIDE
     Dosage: 0.05 MILLIGRAM/KILOGRAM, QD
     Route: 042
     Dates: start: 20160427, end: 20160502
  10. TEDUGLUTIDE [Suspect]
     Active Substance: TEDUGLUTIDE
     Dosage: 0.05 MILLIGRAM/KILOGRAM, QD
     Route: 042
     Dates: start: 20160427, end: 20160502
  11. TEDUGLUTIDE [Suspect]
     Active Substance: TEDUGLUTIDE
     Dosage: 0.05 MILLIGRAM/KILOGRAM, QD
     Route: 042
     Dates: start: 20160427, end: 20160502
  12. TEDUGLUTIDE [Suspect]
     Active Substance: TEDUGLUTIDE
     Dosage: 0.05 MILLIGRAM/KILOGRAM, QD
     Route: 042
     Dates: start: 20160427, end: 20160502
  13. TEDUGLUTIDE [Suspect]
     Active Substance: TEDUGLUTIDE
     Dosage: 0.02 MILLIGRAM/KILOGRAM, QD
     Route: 042
     Dates: start: 20160602, end: 20160620
  14. TEDUGLUTIDE [Suspect]
     Active Substance: TEDUGLUTIDE
     Dosage: 0.02 MILLIGRAM/KILOGRAM, QD
     Route: 042
     Dates: start: 20160602, end: 20160620
  15. TEDUGLUTIDE [Suspect]
     Active Substance: TEDUGLUTIDE
     Dosage: 0.02 MILLIGRAM/KILOGRAM, QD
     Route: 042
     Dates: start: 20160602, end: 20160620
  16. TEDUGLUTIDE [Suspect]
     Active Substance: TEDUGLUTIDE
     Dosage: 0.02 MILLIGRAM/KILOGRAM, QD
     Route: 042
     Dates: start: 20160602, end: 20160620
  17. CEFUROXIME AXETIL [Concomitant]
     Active Substance: CEFUROXIME AXETIL
     Indication: Vascular device infection
     Dosage: UNK
     Route: 065
  18. DOXYCYCLINE HYCLATE [Concomitant]
     Active Substance: DOXYCYCLINE HYCLATE
     Indication: Postoperative wound infection
     Dosage: UNK
     Route: 065
  19. GABAPENTIN [Concomitant]
     Active Substance: GABAPENTIN
     Indication: Nausea
     Dosage: UNK
     Route: 065
  20. FLAGYL [Concomitant]
     Active Substance: METRONIDAZOLE\METRONIDAZOLE HYDROCHLORIDE
     Indication: Postoperative wound infection
     Dosage: UNK
     Route: 065
  21. LOVENOX [Concomitant]
     Active Substance: ENOXAPARIN SODIUM
     Indication: Thrombosis prophylaxis
     Dosage: 40 MILLIGRAM, QD
     Route: 058
     Dates: start: 20210202, end: 20210205
  22. EXCEDRIN [Concomitant]
     Active Substance: ACETAMINOPHEN\ASPIRIN\CAFFEINE
     Indication: Headache
     Dosage: 1 DOSAGE FORM, Q4HR
     Route: 048
     Dates: start: 20210203, end: 20210205
  23. CEFEPRIME [Concomitant]
     Indication: Wound infection staphylococcal
     Dosage: 2 MILLIGRAM, BID
     Route: 042
     Dates: start: 20210207, end: 20210217
  24. VANCOMYCIN [Concomitant]
     Active Substance: VANCOMYCIN
     Indication: Wound infection staphylococcal
     Dosage: 750 MILLIGRAM
     Route: 042
     Dates: start: 20210116, end: 20210220
  25. LABETALOL [Concomitant]
     Active Substance: LABETALOL\LABETALOL HYDROCHLORIDE
     Indication: Hypertension
     Dosage: 10 MILLIGRAM, Q4HR
     Route: 042
     Dates: start: 20210326

REACTIONS (2)
  - Sepsis [Recovered/Resolved]
  - Urinary tract infection [Recovered/Resolved]

NARRATIVE: CASE EVENT DATE: 20180516
